FAERS Safety Report 8652300 (Version 4)
Quarter: 2012Q4

REPORT INFORMATION
  Report Type: Report from Study
  Country: CL (occurrence: CL)
  Receive Date: 20120706
  Receipt Date: 20121031
  Transmission Date: 20130627
  Serious: Yes (Other)
  Sender: FDA-Public Use
  Company Number: CL-ROCHE-1084576

PATIENT
  Age: 64 Year
  Sex: Male
  Weight: 46 kg

DRUGS (3)
  1. CAPECITABINE [Suspect]
     Indication: GASTRIC CANCER
     Route: 048
     Dates: start: 20120626
  2. TAMSULOSIN [Concomitant]
     Route: 048
  3. LOPERAMIDE [Concomitant]

REACTIONS (8)
  - Abdominal pain [Recovering/Resolving]
  - Diarrhoea [Not Recovered/Not Resolved]
  - Vomiting [Not Recovered/Not Resolved]
  - Nervousness [Not Recovered/Not Resolved]
  - Nausea [Not Recovered/Not Resolved]
  - Urinary tract infection [Recovering/Resolving]
  - Salivary hypersecretion [Not Recovered/Not Resolved]
  - Abdominal pain upper [Not Recovered/Not Resolved]
